FAERS Safety Report 25270762 (Version 1)
Quarter: 2025Q2

REPORT INFORMATION
  Report Type: Spontaneous
  Country: IT (occurrence: IT)
  Receive Date: 20250505
  Receipt Date: 20250505
  Transmission Date: 20250716
  Serious: Yes (Other)
  Sender: NANJING KING-FRIEND BIOCHEMICAL PHARMACEUTICAL
  Company Number: IT-NKFPHARMA-2025MPLIT00155

PATIENT
  Age: 13 Year
  Sex: Female

DRUGS (1)
  1. ADALIMUMAB [Suspect]
     Active Substance: ADALIMUMAB
     Indication: Juvenile idiopathic arthritis
     Route: 065

REACTIONS (2)
  - Bullous haemorrhagic dermatosis [Recovered/Resolved]
  - Haemorrhagic vasculitis [Recovered/Resolved]
